FAERS Safety Report 9406341 (Version 2)
Quarter: 2013Q3

REPORT INFORMATION
  Report Type: Spontaneous
  Country: KR (occurrence: KR)
  Receive Date: 20130717
  Receipt Date: 20130815
  Transmission Date: 20140515
  Serious: Yes (Other)
  Sender: FDA-Public Use
  Company Number: KR-009507513-1307KOR006303

PATIENT
  Sex: Male

DRUGS (3)
  1. COSOPT [Suspect]
     Indication: GLAUCOMA
     Dosage: 5:30-6:00 IN THE MORNING AND IN THE EVENING PRIOR TO GO TO BED, TWICE A DAY
     Route: 047
     Dates: start: 2003, end: 2013
  2. COSOPT [Suspect]
     Dosage: UNK
     Route: 047
     Dates: start: 20130708
  3. DORZOLAMIDE HCL AND TIMOLOL MALEATE [Suspect]
     Indication: GLAUCOMA
     Dosage: UNK
     Dates: start: 2013

REACTIONS (4)
  - Pancreatectomy [Unknown]
  - Intraocular pressure increased [Unknown]
  - Eye pain [Unknown]
  - Product quality issue [Unknown]
